FAERS Safety Report 9286431 (Version 3)
Quarter: 2013Q2

REPORT INFORMATION
  Report Type: Spontaneous
  Country: JP (occurrence: JP)
  Receive Date: 20130513
  Receipt Date: 20130528
  Transmission Date: 20140414
  Serious: Yes (Hospitalization)
  Sender: FDA-Public Use
  Company Number: PHHY2013JP046713

PATIENT
  Sex: 0

DRUGS (1)
  1. NEORAL [Suspect]
     Indication: RENAL TRANSPLANT
     Route: 048

REACTIONS (4)
  - Duodenal ulcer [Recovering/Resolving]
  - Abdominal pain upper [Recovering/Resolving]
  - Cytomegalovirus infection [Recovered/Resolved]
  - Duodenal perforation [Recovering/Resolving]
